FAERS Safety Report 13371060 (Version 1)
Quarter: 2017Q1

REPORT INFORMATION
  Report Type: Spontaneous
  Country: US (occurrence: US)
  Receive Date: 20170324
  Receipt Date: 20170324
  Transmission Date: 20170429
  Serious: Yes (Other)
  Sender: FDA-Public Use
  Company Number: US-BAUSCH-BL-2017-007483

PATIENT
  Age: 82 Year
  Sex: Female

DRUGS (5)
  1. TOBRAMYCIN AND DEXAMETHASONE [Concomitant]
     Active Substance: DEXAMETHASONE\TOBRAMYCIN
     Indication: IMPLANT SITE INFLAMMATION
     Route: 047
     Dates: start: 2016
  2. BAUSCH AND LOMB EYE DROP (UNSPECIFIED) [Suspect]
     Active Substance: UNSPECIFIED INGREDIENT
     Indication: PRODUCT USED FOR UNKNOWN INDICATION
     Route: 047
  3. PREDNISOLONE. [Concomitant]
     Active Substance: PREDNISOLONE
     Indication: IMPLANT SITE INFLAMMATION
     Route: 047
     Dates: start: 2016
  4. COLLYRIUM EYE WASH [Suspect]
     Active Substance: WATER
     Indication: EYE DISORDER
     Dosage: 2-3 TIMES DAILY (10 YEARS AGO)
     Route: 061
     Dates: start: 2007
  5. VISINE [Concomitant]
     Active Substance: TETRAHYDROZOLINE HYDROCHLORIDE
     Indication: EYE IRRITATION
     Dosage: AS NEEDED
     Route: 061

REACTIONS (3)
  - Instillation site pain [Unknown]
  - Eye haemorrhage [Not Recovered/Not Resolved]
  - Ocular hyperaemia [Not Recovered/Not Resolved]

NARRATIVE: CASE EVENT DATE: 201703
